FAERS Safety Report 7286288-0 (Version None)
Quarter: 2011Q1

REPORT INFORMATION
  Report Type: 
  Country: None (occurrence: None)
  Receive Date: 20110210
  Receipt Date: 20110131
  Transmission Date: 20110831
  Serious: Yes (Disabling)
  Sender: FDA-Public Use
  Company Number: PHHY2010US79373

PATIENT
  Sex: Male
  Weight: 89 kg

DRUGS (11)
  1. IBUPROFEN [Concomitant]
  2. PLAVIX [Concomitant]
  3. MEDROL [Concomitant]
  4. PERCOCET [Concomitant]
  5. VICODIN [Concomitant]
  6. TRAMADOL HCL [Concomitant]
  7. LOPERAMIDE [Concomitant]
     Dosage: UNK
  8. GLEEVEC [Suspect]
     Indication: CHRONIC MYELOID LEUKAEMIA
     Dosage: 400 MG, QD
  9. PREDNISONE TAB [Concomitant]
     Dosage: 10 MG
  10. MTX [Concomitant]
     Dosage: 20 MG WEEKLY
  11. COMPAZINE [Concomitant]
     Dosage: UNK

REACTIONS (14)
  - HYPOAESTHESIA [None]
  - SYNOVIAL CYST [None]
  - MYALGIA [None]
  - TENDONITIS [None]
  - BLOOD PRESSURE INCREASED [None]
  - MUSCLE SPASMS [None]
  - FATIGUE [None]
  - PAIN IN EXTREMITY [None]
  - NAUSEA [None]
  - BURSITIS [None]
  - MUSCULOSKELETAL STIFFNESS [None]
  - ERYTHEMA NODOSUM [None]
  - VOMITING [None]
  - DIARRHOEA [None]
